FAERS Safety Report 9101199 (Version 1)
Quarter: 2013Q1

REPORT INFORMATION
  Report Type: Spontaneous
  Country: US (occurrence: US)
  Receive Date: 20130218
  Receipt Date: 20130218
  Transmission Date: 20140127
  Serious: Yes (Other)
  Sender: FDA-Public Use
  Company Number: US-ROCHE-1092620

PATIENT
  Age: 85 Year
  Sex: Female
  Weight: 97 kg

DRUGS (3)
  1. TORADOL [Suspect]
     Indication: PRODUCT USED FOR UNKNOWN INDICATION
     Route: 065
  2. XARELTO [Suspect]
     Indication: HIP ARTHROPLASTY
     Route: 048
  3. XARELTO [Suspect]
     Indication: THROMBOSIS PROPHYLAXIS

REACTIONS (3)
  - Blood creatinine increased [Unknown]
  - Haemoglobin decreased [Unknown]
  - Oesophagitis [Unknown]
